FAERS Safety Report 8052896-2 (Version None)
Quarter: 2012Q1

REPORT INFORMATION
  Report Type: 
  Country: None (occurrence: None)
  Receive Date: 20120118
  Receipt Date: 20120109
  Transmission Date: 20120608
  Serious: Yes (Hospitalization)
  Sender: FDA-Public Use
  Company Number: US-BAYER-2010-001793

PATIENT
  Age: 27 Year
  Sex: Female
  Weight: 47.619 kg

DRUGS (2)
  1. YAZ [Suspect]
     Indication: ACNE
     Dosage: UNK
     Route: 048
     Dates: start: 20090701, end: 20091101
  2. ACETAMINOPHEN [Concomitant]
     Indication: HEADACHE

REACTIONS (2)
  - PULMONARY EMBOLISM [None]
  - INJURY [None]
